FAERS Safety Report 5056299-4 (Version None)
Quarter: 2006Q3

REPORT INFORMATION
  Report Type: 
  Country: None (occurrence: None)
  Receive Date: 20060717
  Receipt Date: 20060704
  Transmission Date: 20061208
  Serious: Yes (Hospitalization, Other)
  Sender: FDA-Public Use
  Company Number: 2006083651

PATIENT
  Age: 34 Year
  Sex: Female

DRUGS (5)
  1. LYRICA [Suspect]
     Indication: EPILEPSY
     Dosage: 100 MG (1 D)
     Dates: start: 20060601, end: 20060101
  2. NEURONTIN [Suspect]
     Indication: DRUG USE FOR UNKNOWN INDICATION
  3. TOPIRAMATE [Concomitant]
  4. CARBAMAZEPINE [Concomitant]
  5. PHENOBARBITAL TAB [Concomitant]

REACTIONS (3)
  - CROSS SENSITIVITY REACTION [None]
  - DERMATITIS BULLOUS [None]
  - PHOTOSENSITIVITY REACTION [None]
